FAERS Safety Report 9726424 (Version 4)
Quarter: 2014Q2

REPORT INFORMATION
  Report Type: Spontaneous
  Country: US (occurrence: US)
  Receive Date: 20131203
  Receipt Date: 20140530
  Transmission Date: 20141212
  Serious: Yes (Life-Threatening, Hospitalization, Other)
  Sender: FDA-Public Use
  Company Number: US-BAYER-2013-145413

PATIENT
  Age: 36 Year
  Sex: Female
  Weight: 82.54 kg

DRUGS (5)
  1. MIRENA [Suspect]
     Indication: CONTRACEPTION
     Dosage: 20 MCG/24HR, CONT
     Route: 015
     Dates: start: 20101102, end: 20120514
  2. MIRENA [Suspect]
     Indication: MENORRHAGIA
  3. PRO-AIR [Concomitant]
     Indication: ASTHMA
  4. ADVAIR [Concomitant]
     Indication: ASTHMA
     Dosage: UNK
     Dates: start: 2006
  5. LISINOPRIL [Concomitant]
     Indication: HYPERTENSION
     Dosage: UNK
     Route: 048
     Dates: start: 2006

REACTIONS (11)
  - Uterine perforation [None]
  - Infection [None]
  - Injury [None]
  - Abdominal pain lower [None]
  - General physical health deterioration [None]
  - Anxiety [None]
  - Anhedonia [None]
  - Stress [None]
  - Pain [None]
  - Procedural pain [None]
  - Depression [None]
